FAERS Safety Report 14068886 (Version 1)
Quarter: 2017Q4

REPORT INFORMATION
  Report Type: Spontaneous
  Country: FR (occurrence: FR)
  Receive Date: 20171010
  Receipt Date: 20171010
  Transmission Date: 20180321
  Serious: Yes (Other)
  Sender: FDA-Public Use
  Company Number: FR-MERCK KGAA-2029432

PATIENT
  Age: 43 Year
  Sex: Female

DRUGS (1)
  1. NOVOTHYROX [Suspect]
     Active Substance: LEVOTHYROXINE SODIUM
     Indication: PRODUCT USED FOR UNKNOWN INDICATION
     Route: 048
     Dates: start: 2017

REACTIONS (8)
  - Constipation [Unknown]
  - Tachycardia [Unknown]
  - Blood thyroid stimulating hormone decreased [Unknown]
  - Alopecia [Unknown]
  - Weight increased [Unknown]
  - Nausea [Unknown]
  - Chest pain [Unknown]
  - Thyroxine free [Unknown]

NARRATIVE: CASE EVENT DATE: 20170619
